FAERS Safety Report 7513925-5 (Version None)
Quarter: 2011Q2

REPORT INFORMATION
  Report Type: 
  Country: None (occurrence: None)
  Receive Date: 20110531
  Receipt Date: 20110524
  Transmission Date: 20111010
  Serious: Yes (Death, Hospitalization)
  Sender: FDA-Public Use
  Company Number: PHHO2010SG17291

PATIENT
  Sex: Male
  Weight: 22 kg

DRUGS (2)
  1. ILARIS [Suspect]
     Indication: CHRONIC INFANTILE NEUROLOGICAL CUTANEOUS AND ARTICULAR SYNDROME
     Dosage: 2 MG/KG, (50 MG TOTAL)
     Dates: start: 20100929
  2. PREDNISOLONE [Concomitant]
     Indication: LUNG DISORDER
     Dates: start: 20090101

REACTIONS (12)
  - CHRONIC RESPIRATORY DISEASE [None]
  - OXYGEN CONSUMPTION INCREASED [None]
  - RED BLOOD CELL SEDIMENTATION RATE INCREASED [None]
  - DRUG INEFFECTIVE [None]
  - RASH [None]
  - LUNG DISORDER [None]
  - RESPIRATORY FAILURE [None]
  - C-REACTIVE PROTEIN INCREASED [None]
  - RESPIRATORY DISORDER [None]
  - METAPNEUMOVIRUS INFECTION [None]
  - PYREXIA [None]
  - CONCOMITANT DISEASE PROGRESSION [None]
